FAERS Safety Report 13029622 (Version 1)
Quarter: 2016Q4

REPORT INFORMATION
  Report Type: Spontaneous
  Country: US (occurrence: US)
  Receive Date: 20161215
  Receipt Date: 20161215
  Transmission Date: 20170207
  Serious: No
  Sender: FDA-Public Use
  Company Number: US-BIOVITRUM-2015US0135

PATIENT
  Age: 64 Year
  Sex: Female
  Weight: 93.52 kg

DRUGS (13)
  1. KINERET [Suspect]
     Active Substance: ANAKINRA
     Indication: STOMATITIS
  2. PLAQUENIL [Concomitant]
     Active Substance: HYDROXYCHLOROQUINE SULFATE
  3. LOSARTAN. [Concomitant]
     Active Substance: LOSARTAN
  4. NORCO [Concomitant]
     Active Substance: ACETAMINOPHEN\HYDROCODONE BITARTRATE
     Dosage: 10/325 MG
  5. KINERET [Suspect]
     Active Substance: ANAKINRA
     Indication: RHEUMATOID ARTHRITIS
     Route: 058
     Dates: start: 20150101, end: 20150324
  6. EVISTA [Concomitant]
     Active Substance: RALOXIFENE HYDROCHLORIDE
  7. FOLIC ACID. [Concomitant]
     Active Substance: FOLIC ACID
  8. NEURONTIN [Concomitant]
     Active Substance: GABAPENTIN
  9. LEVOTHYROXINE. [Concomitant]
     Active Substance: LEVOTHYROXINE
  10. TOPAMAX [Concomitant]
     Active Substance: TOPIRAMATE
  11. LYRICA [Concomitant]
     Active Substance: PREGABALIN
  12. VALIUM [Concomitant]
     Active Substance: DIAZEPAM
  13. LIDODERM [Concomitant]
     Active Substance: LIDOCAINE
     Indication: ARTHRALGIA
     Dosage: PRN

REACTIONS (1)
  - Stomatitis [Not Recovered/Not Resolved]

NARRATIVE: CASE EVENT DATE: 20150101
